FAERS Safety Report 22167645 (Version 1)
Quarter: 2023Q2

REPORT INFORMATION
  Report Type: Spontaneous
  Country: AU (occurrence: AU)
  Receive Date: 20230403
  Receipt Date: 20230403
  Transmission Date: 20230721
  Serious: Yes (Other)
  Sender: FDA-Public Use
  Company Number: AU-AMGEN-AUSSP2023053582

PATIENT
  Age: 71 Year
  Sex: Female

DRUGS (1)
  1. REPATHA [Suspect]
     Active Substance: EVOLOCUMAB
     Indication: Blood cholesterol increased
     Dosage: 140, 2 TIMES
     Route: 065

REACTIONS (11)
  - Vision blurred [Unknown]
  - Epistaxis [Unknown]
  - Blood pressure increased [Unknown]
  - Headache [Unknown]
  - Muscular weakness [Unknown]
  - Pain in extremity [Unknown]
  - Weight increased [Unknown]
  - Joint swelling [Unknown]
  - Fatigue [Unknown]
  - Arthralgia [Unknown]
  - Back pain [Unknown]
